FAERS Safety Report 8181550-1 (Version None)
Quarter: 2012Q1

REPORT INFORMATION
  Report Type: 
  Country: None (occurrence: None)
  Receive Date: 20120302
  Receipt Date: 20120221
  Transmission Date: 20120608
  Serious: Yes (Other)
  Sender: FDA-Public Use
  Company Number: US-MYLANLABS-2012S1003784

PATIENT
  Age: 21 Year
  Sex: Female

DRUGS (2)
  1. HALOPERIDOL [Suspect]
     Indication: SCHIZOPHRENIA
     Route: 048
     Dates: start: 20120207, end: 20120220
  2. ALPRAZOLAM [Concomitant]
     Route: 048
     Dates: end: 20120216

REACTIONS (1)
  - HYPERSENSITIVITY [None]
